FAERS Safety Report 4994830-5 (Version None)
Quarter: 2006Q2

REPORT INFORMATION
  Report Type: 
  Country: None (occurrence: None)
  Receive Date: 20060508
  Receipt Date: 20060426
  Transmission Date: 20061013
  Serious: Yes (Disabling)
  Sender: FDA-Public Use
  Company Number: PHNR2006AU00704

PATIENT
  Age: 35 Year
  Sex: Female

DRUGS (1)
  1. LAMISIL [Suspect]
     Dosage: 250 MG, DAILY
     Route: 048
     Dates: start: 20050105, end: 20050201

REACTIONS (3)
  - DYSGEUSIA [None]
  - LETHARGY [None]
  - MALAISE [None]
